FAERS Safety Report 5793639-2 (Version None)
Quarter: 2008Q2

REPORT INFORMATION
  Report Type: 
  Country: None (occurrence: None)
  Receive Date: 20080627
  Receipt Date: 20080623
  Transmission Date: 20081010
  Serious: Yes (Hospitalization)
  Sender: FDA-Public Use
  Company Number: US-BRISTOL-MYERS SQUIBB COMPANY-14237788

PATIENT
  Age: 76 Year
  Sex: Female

DRUGS (17)
  1. IXABEPILONE [Suspect]
     Indication: PANCREATIC CARCINOMA METASTATIC
     Dosage: STARTED ON 14-NOV-2007
     Route: 042
     Dates: start: 20080610, end: 20080610
  2. ERBITUX [Suspect]
     Indication: PANCREATIC CARCINOMA METASTATIC
     Dosage: STARTED ON 14-NOV-2007
     Route: 042
     Dates: start: 20080610, end: 20080610
  3. PROTONIX [Concomitant]
  4. ATENOLOL [Concomitant]
  5. LISINOPRIL [Concomitant]
  6. SYNTHROID [Concomitant]
  7. LANTUS [Concomitant]
     Dosage: LANTUS INSULIN
  8. PANCREASE [Concomitant]
  9. HUMALOG [Concomitant]
     Dosage: HUMALOG INSULIN
  10. COMPAZINE [Concomitant]
  11. CLINDAGEL [Concomitant]
  12. ZINC [Concomitant]
  13. LEVAQUIN [Concomitant]
  14. K-DUR [Concomitant]
  15. XANAX [Concomitant]
  16. MAGNESIUM GLUCONATE [Concomitant]
  17. COLACE [Concomitant]

REACTIONS (3)
  - MYALGIA [None]
  - NAUSEA [None]
  - VOMITING [None]
